FAERS Safety Report 12699302 (Version 1)
Quarter: 2016Q3

REPORT INFORMATION
  Report Type: Spontaneous
  Country: US (occurrence: US)
  Receive Date: 20160830
  Receipt Date: 20160830
  Transmission Date: 20161109
  Serious: No
  Sender: FDA-Public Use
  Company Number: US-ELI_LILLY_AND_COMPANY-US201608008286

PATIENT
  Age: 70 Year
  Sex: Female

DRUGS (4)
  1. EFFIENT [Suspect]
     Active Substance: PRASUGREL HYDROCHLORIDE
     Indication: STENT PLACEMENT
     Dosage: 10 MG, QD
     Dates: start: 20160328
  2. LANTUS [Concomitant]
     Active Substance: INSULIN GLARGINE
  3. ASPIRIN                            /00002701/ [Concomitant]
     Active Substance: ASPIRIN
  4. ISOSORBIDE. [Concomitant]
     Active Substance: ISOSORBIDE

REACTIONS (3)
  - Epistaxis [Not Recovered/Not Resolved]
  - Vision blurred [Not Recovered/Not Resolved]
  - Haemorrhage [Not Recovered/Not Resolved]

NARRATIVE: CASE EVENT DATE: 201607
